FAERS Safety Report 14615470 (Version 1)
Quarter: 2018Q1

REPORT INFORMATION
  Report Type: Spontaneous
  Country: FR (occurrence: FR)
  Receive Date: 20180308
  Receipt Date: 20180308
  Transmission Date: 20180509
  Serious: Yes (Other)
  Sender: FDA-Public Use
  Company Number: FR-MERCK KGAA-2043361

PATIENT
  Age: 63 Year
  Sex: Female
  Weight: 89 kg

DRUGS (1)
  1. NOVOTHYROX [Suspect]
     Active Substance: LEVOTHYROXINE SODIUM
     Indication: HYPOTHYROIDISM
     Route: 048
     Dates: start: 20170716, end: 20171024

REACTIONS (12)
  - Weight increased [Unknown]
  - Constipation [Recovered/Resolved]
  - Feeling abnormal [Not Recovered/Not Resolved]
  - Onychoclasis [Unknown]
  - Dry skin [Unknown]
  - Asthenia [Not Recovered/Not Resolved]
  - Alopecia [Unknown]
  - Diarrhoea [Not Recovered/Not Resolved]
  - Muscle spasms [Unknown]
  - Arthralgia [Unknown]
  - Palpitations [Unknown]
  - Feeling cold [Unknown]

NARRATIVE: CASE EVENT DATE: 20170801
